FAERS Safety Report 8360198-X (Version None)
Quarter: 2012Q2

REPORT INFORMATION
  Report Type: 
  Country: None (occurrence: None)
  Receive Date: 20120515
  Receipt Date: 20120503
  Transmission Date: 20120825
  Serious: Yes (Other)
  Sender: FDA-Public Use
  Company Number: US-JNJFOC-20120506341

PATIENT

DRUGS (1)
  1. NEOSPORIN [Suspect]
     Indication: SCAR
     Route: 061
     Dates: start: 20120101

REACTIONS (3)
  - INCORRECT DRUG ADMINISTRATION DURATION [None]
  - SCAR [None]
  - OFF LABEL USE [None]
